FAERS Safety Report 15129575 (Version 3)
Quarter: 2018Q4

REPORT INFORMATION
  Report Type: Spontaneous
  Country: US (occurrence: US)
  Receive Date: 20180711
  Receipt Date: 20181002
  Transmission Date: 20190204
  Serious: Yes (Hospitalization, Other)
  Sender: FDA-Public Use
  Company Number: US-SA-2018SA148295

PATIENT
  Age: 99 Year
  Sex: Female
  Weight: 137 kg

DRUGS (1)
  1. PLAVIX [Suspect]
     Active Substance: CLOPIDOGREL BISULFATE
     Indication: CEREBROVASCULAR ACCIDENT
     Dosage: 1 DF, QD
     Route: 065
     Dates: start: 199811, end: 201111

REACTIONS (2)
  - Gastrointestinal disorder [Recovered/Resolved]
  - Ulcer haemorrhage [Unknown]
